FAERS Safety Report 6364116-5 (Version None)
Quarter: 2009Q3

REPORT INFORMATION
  Report Type: 
  Country: None (occurrence: None)
  Receive Date: 20090919
  Receipt Date: 20090715
  Transmission Date: 20100115
  Serious: No
  Sender: FDA-Public Use
  Company Number: US-ABBOTT-09P-163-0566717-00

PATIENT
  Sex: Female
  Weight: 131.66 kg

DRUGS (6)
  1. HUMIRA [Suspect]
     Indication: PSORIASIS
     Route: 058
     Dates: start: 20081001, end: 20081201
  2. HUMIRA [Suspect]
     Dates: start: 20090201, end: 20090201
  3. METFORMIN HCL [Concomitant]
     Indication: DIABETES MELLITUS
     Route: 048
  4. NABUMETONE [Concomitant]
     Indication: ARTHRITIS
     Route: 048
  5. UNKNOWN DEPRESSION/ANXIETY MEDICATION [Concomitant]
     Indication: DEPRESSION
  6. UNKNOWN DEPRESSION/ANXIETY MEDICATION [Concomitant]
     Indication: ANXIETY

REACTIONS (7)
  - CYSTITIS [None]
  - DYSURIA [None]
  - EAR INFECTION [None]
  - POLLAKIURIA [None]
  - SINUSITIS [None]
  - UPPER RESPIRATORY TRACT INFECTION [None]
  - URINARY TRACT INFECTION [None]
